FAERS Safety Report 23252648 (Version 2)
Quarter: 2023Q4

REPORT INFORMATION
  Report Type: Report from Study
  Country: GB (occurrence: GB)
  Receive Date: 20231201
  Receipt Date: 20231214
  Transmission Date: 20240110
  Serious: Yes (Hospitalization)
  Sender: FDA-Public Use
  Company Number: GB-ALXN-A202012046

PATIENT
  Age: 44 Year
  Sex: Female

DRUGS (3)
  1. SOLIRIS [Suspect]
     Active Substance: ECULIZUMAB
     Indication: Paroxysmal nocturnal haemoglobinuria
     Dosage: 600 MG, QW
     Route: 065
     Dates: start: 20190724, end: 20190814
  2. SOLIRIS [Suspect]
     Active Substance: ECULIZUMAB
     Dosage: 900 MG, Q2W
     Route: 042
     Dates: start: 20190829
  3. PENICILLIN G [Concomitant]
     Active Substance: PENICILLIN G
     Indication: Prophylaxis
     Dosage: 500 MG, BID
     Route: 065

REACTIONS (19)
  - Migraine [Unknown]
  - Pain [Not Recovered/Not Resolved]
  - Oxygen saturation decreased [Unknown]
  - Catheter site bruise [Not Recovered/Not Resolved]
  - Nausea [Recovered/Resolved]
  - Nasopharyngitis [Not Recovered/Not Resolved]
  - Fatigue [Not Recovered/Not Resolved]
  - Dyspnoea [Not Recovered/Not Resolved]
  - Headache [Not Recovered/Not Resolved]
  - Abdominal pain [Not Recovered/Not Resolved]
  - Upper respiratory tract infection [Not Recovered/Not Resolved]
  - Back pain [Not Recovered/Not Resolved]
  - Cough [Not Recovered/Not Resolved]
  - Oropharyngeal pain [Not Recovered/Not Resolved]
  - Hot flush [Unknown]
  - Anxiety [Unknown]
  - Poor venous access [Not Recovered/Not Resolved]
  - Malaise [Unknown]
  - Influenza [Unknown]

NARRATIVE: CASE EVENT DATE: 20220301
